FAERS Safety Report 5630206-5 (Version None)
Quarter: 2008Q1

REPORT INFORMATION
  Report Type: 
  Country: None (occurrence: None)
  Receive Date: 20080215
  Receipt Date: 20080201
  Transmission Date: 20080703
  Serious: Yes (Death, Hospitalization)
  Sender: FDA-Public Use
  Company Number: 2008US000189

PATIENT
  Age: 40 Year
  Sex: Female
  Weight: 68 kg

DRUGS (8)
  1. PROGRAF [Suspect]
     Indication: RENAL TRANSPLANT
     Dosage: 3.5 MG, BID, ORAL
     Route: 048
     Dates: start: 20060516, end: 20071203
  2. THYMOGLOBULIN [Concomitant]
  3. MYFORTIC [Concomitant]
  4. MULTIVITAMIN [Concomitant]
  5. OSCAL D        (VITAMIN D NOS) [Concomitant]
  6. PRILOSEC [Concomitant]
  7. ARANESP [Concomitant]
  8. PREMARIN [Concomitant]

REACTIONS (4)
  - BRAIN DEATH [None]
  - CARDIAC ARREST [None]
  - CARDIAC FUNCTION DISTURBANCE POSTOPERATIVE [None]
  - SUBARACHNOID HAEMORRHAGE [None]
